FAERS Safety Report 5220536-3 (Version None)
Quarter: 2007Q1

REPORT INFORMATION
  Report Type: 
  Country: None (occurrence: None)
  Receive Date: 20070125
  Receipt Date: 20070125
  Transmission Date: 20070707
  Serious: Yes (Hospitalization)
  Sender: FDA-Public Use
  Company Number: None

PATIENT
  Sex: Male
  Weight: 77.1115 kg

DRUGS (8)
  1. AMOXICILLIN [Suspect]
     Indication: THERAPEUTIC PROCEDURE
     Dosage: PO
     Route: 048
  2. AMOXICILLIN [Suspect]
     Indication: TOOTH DISORDER
     Dosage: PO
     Route: 048
  3. ASPIRIN [Concomitant]
  4. LISINOPRIL [Concomitant]
  5. ATENOLOL [Concomitant]
  6. GLUCOPHAGE [Concomitant]
  7. VOLTAREN [Concomitant]
  8. ZOCOR [Concomitant]

REACTIONS (3)
  - LIP SWELLING [None]
  - SWELLING FACE [None]
  - URTICARIA [None]
